FAERS Safety Report 16335627 (Version 2)
Quarter: 2019Q3

REPORT INFORMATION
  Report Type: Spontaneous
  Country: CN (occurrence: CN)
  Receive Date: 20190521
  Receipt Date: 20190913
  Transmission Date: 20191004
  Serious: Yes (Other)
  Sender: FDA-Public Use
  Company Number: CN-ASTRAZENECA-2019SE74604

PATIENT
  Age: 22747 Day
  Sex: Female
  Weight: 62 kg

DRUGS (2)
  1. FASLODEX [Suspect]
     Active Substance: FULVESTRANT
     Indication: ILL-DEFINED DISORDER
     Route: 030
     Dates: start: 20190325, end: 20190325
  2. JIA NUO SHUN [Concomitant]
     Indication: ILL-DEFINED DISORDER
     Dosage: 4MG, 28.0 DAYS
     Route: 030
     Dates: start: 20190325

REACTIONS (2)
  - Rash morbilliform [Unknown]
  - Injection site erythema [Unknown]

NARRATIVE: CASE EVENT DATE: 20190328
